FAERS Safety Report 11773769 (Version 16)
Quarter: 2018Q3

REPORT INFORMATION
  Report Type: Report from Study
  Country: AT (occurrence: AT)
  Receive Date: 20151124
  Receipt Date: 20180830
  Transmission Date: 20181010
  Serious: Yes (Hospitalization)
  Sender: FDA-Public Use
  Company Number: AT-ROCHE-1665328

PATIENT
  Age: 70 Year
  Sex: Male
  Weight: 70 kg

DRUGS (102)
  1. TAZONAM [Concomitant]
     Active Substance: TAZOBACTAM
     Indication: PYREXIA
     Route: 042
     Dates: start: 20151028, end: 20151030
  2. RED BLOOD CELLS [Concomitant]
     Active Substance: HUMAN RED BLOOD CELL
     Route: 042
     Dates: start: 20160418, end: 20160418
  3. VANCOMYCIN [Concomitant]
     Active Substance: VANCOMYCIN
     Route: 042
     Dates: start: 20160413, end: 20160414
  4. ARTERENOL [Concomitant]
     Active Substance: NOREPINEPHRINE HYDROCHLORIDE, (+/-)-
     Indication: HYPOTENSION
     Route: 042
     Dates: start: 20160320, end: 20160322
  5. DEXDOR [Concomitant]
     Active Substance: DEXMEDETOMIDINE HYDROCHLORIDE
     Route: 042
     Dates: start: 20160327, end: 20160330
  6. GLUCOSE?1?PHOSPHATE [Concomitant]
     Indication: RENAL FAILURE
     Route: 042
     Dates: start: 20160326, end: 20160331
  7. PROPOFOL MCT FRESENIUS [Concomitant]
     Dosage: AS REQUIRED
     Route: 042
     Dates: start: 20160320, end: 20160327
  8. PROPOFOL MCT FRESENIUS [Concomitant]
     Dosage: AS REQUIRED
     Route: 042
     Dates: start: 20160401, end: 20160406
  9. AMLODIPIN [Concomitant]
     Active Substance: AMLODIPINE BESYLATE
     Route: 048
     Dates: start: 20160322, end: 20160405
  10. ALLOPURINOL. [Concomitant]
     Active Substance: ALLOPURINOL
     Indication: HYPERURICAEMIA
     Route: 048
     Dates: start: 201507, end: 20160307
  11. KETANEST [Concomitant]
     Active Substance: KETAMINE HYDROCHLORIDE
     Route: 042
     Dates: start: 20160425, end: 20160425
  12. RED BLOOD CELLS [Concomitant]
     Active Substance: HUMAN RED BLOOD CELL
     Indication: ANAEMIA
     Route: 042
     Dates: start: 20160406, end: 20160406
  13. ECALTA [Concomitant]
     Active Substance: ANIDULAFUNGIN
     Indication: C-REACTIVE PROTEIN INCREASED
     Route: 042
     Dates: start: 20160405, end: 20160406
  14. TENORMIN [Concomitant]
     Active Substance: ATENOLOL
     Route: 048
     Dates: start: 20160322, end: 20160330
  15. PASPERTIN (AUSTRIA) [Concomitant]
     Indication: NAUSEA
     Route: 042
     Dates: start: 20160330, end: 20160331
  16. DEXDOR [Concomitant]
     Active Substance: DEXMEDETOMIDINE HYDROCHLORIDE
     Route: 042
     Dates: start: 20160401, end: 20160410
  17. MIDAZOLAM [Concomitant]
     Active Substance: MIDAZOLAM HYDROCHLORIDE
     Indication: SEDATION
     Route: 042
     Dates: start: 20160408, end: 20160408
  18. OBINUTUZUMAB. [Suspect]
     Active Substance: OBINUTUZUMAB
     Indication: CHRONIC LYMPHOCYTIC LEUKAEMIA
     Dosage: MOST RECENT DOSE PRIOR TO  FATIGUE AND (CMV) REACTIVATION: 11/NOV/2015 AT 13:30 1000 MG?MOST RECENT
     Route: 042
     Dates: start: 20151027
  19. AMLODIPIN [Concomitant]
     Active Substance: AMLODIPINE BESYLATE
     Indication: HYPERTENSION
     Route: 048
     Dates: start: 20151029, end: 20151111
  20. PERFALGAN [Concomitant]
     Active Substance: ACETAMINOPHEN
     Indication: HEADACHE
     Route: 042
     Dates: start: 20151028, end: 20151028
  21. FENTANYL. [Concomitant]
     Active Substance: FENTANYL
     Indication: ANALGESIC THERAPY
     Route: 042
     Dates: start: 20160320, end: 20160320
  22. RED BLOOD CELLS [Concomitant]
     Active Substance: HUMAN RED BLOOD CELL
     Route: 042
     Dates: start: 20160410, end: 20160410
  23. LACTULOSE. [Concomitant]
     Active Substance: LACTULOSE
     Indication: CONSTIPATION
     Route: 048
     Dates: start: 20160422, end: 20160422
  24. TYGACIL [Concomitant]
     Active Substance: TIGECYCLINE
     Route: 042
     Dates: start: 20160416, end: 20160421
  25. TYGACIL [Concomitant]
     Active Substance: TIGECYCLINE
     Route: 042
     Dates: start: 20160424, end: 20160424
  26. CATAPRESSAN [Concomitant]
     Active Substance: CLONIDINE
     Route: 042
     Dates: start: 20160410, end: 20160421
  27. DORMICUM [Concomitant]
     Route: 042
     Dates: start: 20160411, end: 20160411
  28. DORMICUM [Concomitant]
     Route: 042
     Dates: start: 20160321, end: 20160321
  29. PRAXITEN [Concomitant]
     Active Substance: OXAZEPAM
     Route: 048
     Dates: start: 20160410, end: 20160426
  30. MIDAZOLAM [Concomitant]
     Active Substance: MIDAZOLAM HYDROCHLORIDE
     Route: 042
     Dates: start: 20160425, end: 20160425
  31. DIAMOX SEQUELS [Concomitant]
     Active Substance: ACETAZOLAMIDE
     Indication: RENAL FAILURE
     Route: 042
     Dates: start: 20160406, end: 20160406
  32. DIAMOX SEQUELS [Concomitant]
     Active Substance: ACETAZOLAMIDE
     Route: 042
     Dates: start: 20160409, end: 20160409
  33. NATRIUMGLYCEROFOSFAT [Concomitant]
     Indication: RENAL FAILURE
     Route: 042
     Dates: start: 20160407, end: 20160407
  34. AMLODIPIN [Concomitant]
     Active Substance: AMLODIPINE BESYLATE
     Route: 048
     Dates: start: 20160424
  35. PREDNISOLUT [Concomitant]
     Active Substance: PREDNISOLONE
     Indication: PREMEDICATION
     Route: 042
     Dates: start: 20151027, end: 20160218
  36. LOVENOX [Concomitant]
     Active Substance: ENOXAPARIN SODIUM
     Route: 058
     Dates: start: 20160318, end: 20160620
  37. MOLAXOLE [Concomitant]
     Active Substance: POLYETHYLENE GLYCOL 3350\POTASSIUM CHLORIDE\SODIUM BICARBONATE\SODIUM CHLORIDE
     Indication: CONSTIPATION
  38. PANTOLOC [Concomitant]
     Active Substance: PANTOPRAZOLE SODIUM
     Route: 042
     Dates: start: 20160401, end: 20160413
  39. KETANEST [Concomitant]
     Active Substance: KETAMINE HYDROCHLORIDE
     Indication: ANALGESIC THERAPY
     Route: 042
     Dates: start: 20160408, end: 20160408
  40. ACTRAPID [Concomitant]
     Active Substance: INSULIN HUMAN
     Indication: HYPERGLYCAEMIA
     Dosage: GRAIN
     Route: 042
     Dates: start: 20160321, end: 20160404
  41. DOXAZOSIN [Concomitant]
     Active Substance: DOXAZOSIN\DOXAZOSIN MESYLATE
     Route: 048
     Dates: start: 20160330, end: 20160330
  42. CLONIDINE HYDROCHLORIDE. [Concomitant]
     Active Substance: CLONIDINE HYDROCHLORIDE
     Route: 042
     Dates: start: 20160412, end: 20160420
  43. LASIX [Concomitant]
     Active Substance: FUROSEMIDE
     Indication: RENAL FAILURE
     Route: 042
     Dates: start: 20160320, end: 20160322
  44. LASIX [Concomitant]
     Active Substance: FUROSEMIDE
     Route: 042
     Dates: start: 20160408, end: 20160408
  45. VENETOCLAX. [Suspect]
     Active Substance: VENETOCLAX
     Indication: CHRONIC LYMPHOCYTIC LEUKAEMIA
     Dosage: MOST RECENT DOSE OF GDC?0199 (BCL?2 SELECTIVE INHIBITOR) PRIOR TO PNEUMOCYSTOSIS: 400 MG, ON 08/MAR/
     Route: 048
     Dates: start: 20151123
  46. AMLODIPIN [Concomitant]
     Active Substance: AMLODIPINE BESYLATE
     Indication: HYPERTENSION
     Route: 048
     Dates: start: 20151021, end: 20151027
  47. AMLODIPIN [Concomitant]
     Active Substance: AMLODIPINE BESYLATE
     Route: 048
     Dates: start: 20160406, end: 20160421
  48. PERFALGAN [Concomitant]
     Active Substance: ACETAMINOPHEN
     Indication: PYREXIA
     Route: 042
     Dates: start: 20160316, end: 20160317
  49. LOVENOX [Concomitant]
     Active Substance: ENOXAPARIN SODIUM
     Indication: THROMBOSIS PROPHYLAXIS
     Route: 058
     Dates: start: 20160317, end: 20160317
  50. SUFENTA [Concomitant]
     Active Substance: SUFENTANIL CITRATE
     Route: 042
     Dates: start: 20160404, end: 20160404
  51. LIDAPRIM [Concomitant]
     Indication: C-REACTIVE PROTEIN INCREASED
     Route: 042
     Dates: start: 20160320, end: 20160320
  52. CONCOR COR [Concomitant]
     Active Substance: BISOPROLOL FUMARATE
     Indication: HYPERTENSION
     Route: 048
     Dates: start: 20160405, end: 20160406
  53. ESMERON [Concomitant]
     Active Substance: ROCURONIUM BROMIDE
     Indication: ENDOTRACHEAL INTUBATION
     Route: 042
     Dates: start: 20160320, end: 20160320
  54. PARACETAMOL [Concomitant]
     Active Substance: ACETAMINOPHEN
     Route: 042
     Dates: start: 20160409, end: 20160409
  55. KALIUM?L?MALAT [Concomitant]
     Route: 042
     Dates: start: 20160406, end: 20160414
  56. KALIUM?L?MALAT [Concomitant]
     Route: 042
     Dates: start: 20160403, end: 20160404
  57. FURON [Concomitant]
     Active Substance: FUROSEMIDE
     Indication: RENAL FAILURE
     Route: 042
     Dates: start: 20160331, end: 20160404
  58. CLONIDINE HYDROCHLORIDE. [Concomitant]
     Active Substance: CLONIDINE HYDROCHLORIDE
     Route: 042
     Dates: start: 20160320, end: 20160327
  59. DORMICUM [Concomitant]
     Route: 042
     Dates: start: 20160423, end: 20160423
  60. SEROQUEL [Concomitant]
     Active Substance: QUETIAPINE FUMARATE
     Route: 048
     Dates: start: 20160331, end: 20160427
  61. LISINOPRIL. [Concomitant]
     Active Substance: LISINOPRIL
     Indication: HYPERTENSION
     Route: 048
     Dates: start: 2010, end: 20151111
  62. AMLODIPIN [Concomitant]
     Active Substance: AMLODIPINE BESYLATE
     Indication: HYPERTENSION
     Route: 048
     Dates: start: 20151028, end: 20151028
  63. ALLOPURINOL. [Concomitant]
     Active Substance: ALLOPURINOL
     Dosage: UROSIN
     Route: 048
     Dates: start: 20160308
  64. CALCITONIN [Concomitant]
     Active Substance: CALCITONIN
     Indication: HYPERCALCAEMIA
     Route: 058
     Dates: start: 20160309, end: 20160311
  65. AGAFFIN [Concomitant]
     Indication: CONSTIPATION
     Route: 048
     Dates: start: 20160321, end: 20160321
  66. AGAFFIN [Concomitant]
     Route: 048
     Dates: start: 20160404, end: 20160413
  67. RED BLOOD CELLS [Concomitant]
     Active Substance: HUMAN RED BLOOD CELL
     Route: 042
     Dates: start: 20160408, end: 20160408
  68. CONCOR COR [Concomitant]
     Active Substance: BISOPROLOL FUMARATE
     Route: 048
     Dates: start: 20160407, end: 20160501
  69. DOXAZOSIN [Concomitant]
     Active Substance: DOXAZOSIN\DOXAZOSIN MESYLATE
     Route: 048
     Dates: start: 20160329, end: 20160329
  70. PARACETAMOL [Concomitant]
     Active Substance: ACETAMINOPHEN
     Indication: PAIN
     Route: 042
     Dates: start: 20160405, end: 20160405
  71. PARACETAMOL [Concomitant]
     Active Substance: ACETAMINOPHEN
     Route: 042
     Dates: start: 20160410, end: 20160410
  72. KALIUM?L?MALAT [Concomitant]
     Indication: HYPOKALAEMIA
     Route: 042
     Dates: start: 20160322, end: 20160323
  73. SEROQUEL [Concomitant]
     Active Substance: QUETIAPINE FUMARATE
     Route: 048
     Dates: start: 20160328, end: 20160330
  74. LASIX [Concomitant]
     Active Substance: FUROSEMIDE
     Route: 042
     Dates: start: 20160323, end: 20160323
  75. AMLODIPIN [Concomitant]
     Active Substance: AMLODIPINE BESYLATE
     Indication: HYPERTENSION
     Route: 048
     Dates: start: 20151113, end: 20160308
  76. DIBONDRIN [Concomitant]
     Active Substance: DIPHENHYDRAMINE HYDROCHLORIDE
     Indication: PREMEDICATION
     Route: 042
     Dates: start: 20151027, end: 20160218
  77. MOLAXOLE [Concomitant]
     Active Substance: POLYETHYLENE GLYCOL 3350\POTASSIUM CHLORIDE\SODIUM BICARBONATE\SODIUM CHLORIDE
     Indication: CONSTIPATION
     Dosage: DOSE: 1 (UNIT: OTHER)
     Route: 048
     Dates: start: 20160320, end: 20160330
  78. SUFENTA [Concomitant]
     Active Substance: SUFENTANIL CITRATE
     Indication: ANALGESIC THERAPY
     Route: 042
     Dates: start: 20160320, end: 20160327
  79. RED BLOOD CELLS [Concomitant]
     Active Substance: HUMAN RED BLOOD CELL
     Route: 042
     Dates: start: 20160412, end: 20160412
  80. VANCOMYCIN [Concomitant]
     Active Substance: VANCOMYCIN
     Indication: C-REACTIVE PROTEIN INCREASED
     Route: 042
     Dates: start: 20160413, end: 20160413
  81. RATIOGRASTIM [Concomitant]
     Active Substance: FILGRASTIM
     Indication: NEUTROPENIA
     Dosage: 30 MIO (IU)
     Route: 058
     Dates: start: 20160410, end: 20160417
  82. NOVAMINSULFON [Concomitant]
     Active Substance: METAMIZOLE
     Indication: PAIN
     Route: 042
     Dates: start: 20160406, end: 20160406
  83. NOVAMINSULFON [Concomitant]
     Active Substance: METAMIZOLE
     Route: 042
     Dates: start: 20160415, end: 20160415
  84. ATOSIL [Concomitant]
     Active Substance: PROMETHAZINE HYDROCHLORIDE
     Route: 042
     Dates: start: 20160407, end: 20160414
  85. MIDAZOLAM [Concomitant]
     Active Substance: MIDAZOLAM HYDROCHLORIDE
     Route: 042
     Dates: start: 20160412, end: 20160412
  86. LASIX [Concomitant]
     Active Substance: FUROSEMIDE
     Indication: RENAL FAILURE
     Route: 042
     Dates: start: 20160325, end: 20160325
  87. GLUCOSE?1?PHOSPHATE [Concomitant]
     Route: 042
     Dates: start: 20160411, end: 20160421
  88. PROPOFOL MCT FRESENIUS [Concomitant]
     Indication: SEDATION
     Route: 042
     Dates: start: 20160322, end: 20160324
  89. LISINOPRIL. [Concomitant]
     Active Substance: LISINOPRIL
     Indication: HYPERTENSION
     Route: 048
     Dates: start: 20151113, end: 20151115
  90. OLEOVIT D3 [Concomitant]
     Active Substance: CHOLECALCIFEROL
     Indication: VITAMIN D DEFICIENCY
     Route: 048
     Dates: start: 20151027, end: 20160308
  91. MEXALEN [Concomitant]
     Active Substance: ACETAMINOPHEN
     Indication: PREMEDICATION
     Route: 048
     Dates: start: 20151027, end: 20160218
  92. PANTOLOC [Concomitant]
     Active Substance: PANTOPRAZOLE SODIUM
     Indication: GASTRIC ULCER
     Route: 042
     Dates: start: 20160320, end: 20160324
  93. CEFEPIM [Concomitant]
     Active Substance: CEFEPIME HYDROCHLORIDE
     Indication: C-REACTIVE PROTEIN INCREASED
     Route: 042
     Dates: start: 20160320, end: 20160406
  94. ACTRAPID [Concomitant]
     Active Substance: INSULIN HUMAN
     Route: 042
     Dates: start: 20160409, end: 20160424
  95. ACTRAPID [Concomitant]
     Active Substance: INSULIN HUMAN
     Route: 042
     Dates: start: 20160427, end: 20160427
  96. DOXAZOSIN [Concomitant]
     Active Substance: DOXAZOSIN\DOXAZOSIN MESYLATE
     Indication: HYPERTENSION
     Route: 048
     Dates: start: 20160322, end: 20160322
  97. ARTERENOL [Concomitant]
     Active Substance: NOREPINEPHRINE HYDROCHLORIDE, (+/-)-
     Route: 042
     Dates: start: 20160408, end: 20160409
  98. ARTERENOL [Concomitant]
     Active Substance: NOREPINEPHRINE HYDROCHLORIDE, (+/-)-
     Route: 042
     Dates: start: 20160401, end: 20160403
  99. PARACETAMOL [Concomitant]
     Active Substance: ACETAMINOPHEN
     Route: 042
     Dates: start: 20160406, end: 20160408
  100. DORMICUM [Concomitant]
     Route: 042
     Dates: start: 20160320, end: 20160320
  101. DOMINAL (PROTHIPENDYL HYDROCHLORIDE) [Concomitant]
     Active Substance: PROTHIPENDYL HYDROCHLORIDE
     Indication: SLEEP DISORDER
     Route: 048
     Dates: start: 20160427, end: 20160427
  102. PROPOFOL MCT FRESENIUS [Concomitant]
     Route: 042
     Dates: start: 20160320, end: 20160320

REACTIONS (3)
  - Pneumocystis jirovecii pneumonia [Recovered/Resolved]
  - Cytomegalovirus infection [Recovered/Resolved]
  - Fatigue [Recovered/Resolved]

NARRATIVE: CASE EVENT DATE: 20151115
